FAERS Safety Report 11789435 (Version 1)
Quarter: 2015Q4

REPORT INFORMATION
  Report Type: Spontaneous
  Country: IT (occurrence: IT)
  Receive Date: 20151201
  Receipt Date: 20151201
  Transmission Date: 20160305
  Serious: Yes (Life-Threatening, Other)
  Sender: FDA-Public Use
  Company Number: IT-JNJFOC-20151118379

PATIENT
  Age: 12 Year
  Sex: Female

DRUGS (4)
  1. FLUCONAZOLE. [Concomitant]
     Active Substance: FLUCONAZOLE
     Indication: ANTIFUNGAL PROPHYLAXIS
     Route: 065
  2. DEXAMETHASONE. [Suspect]
     Active Substance: DEXAMETHASONE
     Indication: T-CELL TYPE ACUTE LEUKAEMIA
     Dosage: ADMINISTERED ON DAYS 1-15
     Route: 065
  3. DOXORUBICIN HYDROCHLORIDE. [Suspect]
     Active Substance: DOXORUBICIN HYDROCHLORIDE
     Indication: T-CELL TYPE ACUTE LEUKAEMIA
     Dosage: ADMINISTERED ON DAYS 1 AND 7
     Route: 065
  4. VINCRISTINE [Suspect]
     Active Substance: VINCRISTINE
     Indication: T-CELL TYPE ACUTE LEUKAEMIA
     Dosage: ADMINISTERED ON DAYS 1 AND 7
     Route: 065

REACTIONS (12)
  - Hypertriglyceridaemia [Recovering/Resolving]
  - Myositis [Recovering/Resolving]
  - Mucormycosis [Recovering/Resolving]
  - Pancytopenia [Recovering/Resolving]
  - Rhabdomyolysis [Recovering/Resolving]
  - Escherichia infection [Recovering/Resolving]
  - Product use issue [Unknown]
  - Off label use [Unknown]
  - Neuropathy peripheral [Recovering/Resolving]
  - Hyperbilirubinaemia [Recovering/Resolving]
  - Diabetes mellitus [Recovering/Resolving]
  - Epstein-Barr virus infection [Recovering/Resolving]
